FAERS Safety Report 4359744-2 (Version None)
Quarter: 2004Q2

REPORT INFORMATION
  Report Type: 
  Country: None (occurrence: None)
  Receive Date: 20040518
  Receipt Date: 20040507
  Transmission Date: 20050107
  Serious: Yes (Other)
  Sender: FDA-Public Use
  Company Number: US-MERCK-0405USA00683

PATIENT

DRUGS (1)
  1. CANCIDAS [Suspect]
     Indication: SYSTEMIC CANDIDA
     Route: 042

REACTIONS (1)
  - OSTEOMYELITIS [None]
